FAERS Safety Report 6574636-6 (Version None)
Quarter: 2010Q1

REPORT INFORMATION
  Report Type: 
  Country: None (occurrence: None)
  Receive Date: 20100201
  Receipt Date: 20100125
  Transmission Date: 20100710
  Serious: Yes (Other)
  Sender: FDA-Public Use
  Company Number: 2010SP005036

PATIENT
  Age: 2 Year
  Sex: Male

DRUGS (1)
  1. AERIUS          (DESLORATADINE /01398501/) [Suspect]
     Indication: DRUG USE FOR UNKNOWN INDICATION
     Dosage: ONCE; PO
     Route: 048
     Dates: start: 20100124

REACTIONS (3)
  - CYANOSIS [None]
  - DYSPNOEA [None]
  - VOMITING [None]
